FAERS Safety Report 5037744-7 (Version None)
Quarter: 2006Q2

REPORT INFORMATION
  Report Type: 
  Country: None (occurrence: None)
  Receive Date: 20060601
  Receipt Date: 20060210
  Transmission Date: 20061013
  Serious: No
  Sender: FDA-Public Use
  Company Number: 2006PV008505

PATIENT
  Age: 66 Year
  Sex: Male
  Weight: 117.4816 kg

DRUGS (6)
  1. BYETTA [Suspect]
     Indication: DIABETES MELLITUS NON-INSULIN-DEPENDENT
     Dosage: 5 MCG;BID;SC
     Route: 058
     Dates: start: 20060124
  2. GLYBURIDE [Concomitant]
  3. AVANDIA [Concomitant]
  4. ZEBETA [Concomitant]
  5. POTASSIUM CHLORIDE [Concomitant]
  6. MAXZIDE [Concomitant]

REACTIONS (8)
  - BLOOD GLUCOSE INCREASED [None]
  - BLOOD POTASSIUM INCREASED [None]
  - CHILLS [None]
  - FEELING COLD [None]
  - NAUSEA [None]
  - PERIPHERAL COLDNESS [None]
  - THERAPEUTIC RESPONSE UNEXPECTED [None]
  - WEIGHT DECREASED [None]
